FAERS Safety Report 4307163-7 (Version None)
Quarter: 2004Q1

REPORT INFORMATION
  Report Type: 
  Country: None (occurrence: None)
  Receive Date: 20040225
  Receipt Date: 20030528
  Transmission Date: 20041129
  Serious: Yes (Other)
  Sender: FDA-Public Use
  Company Number: 2003-DE-02086UP

PATIENT
  Age: 68 Year
  Sex: Female

DRUGS (3)
  1. MIRAPEXIN              (PRAMIPEXOLE) [Suspect]
     Indication: PARKINSON'S DISEASE
     Dosage: SEE IMAGE
     Route: 048
  2. MADOPAR    (MADOPAR) [Suspect]
     Indication: PARKINSON'S DISEASE
     Dosage: 62.5 MG (NR) PO
     Route: 048
  3. LEVOTHYROXINE SODIUM [Concomitant]

REACTIONS (2)
  - CYANOSIS [None]
  - PAIN IN EXTREMITY [None]
